FAERS Safety Report 10375087 (Version 1)
Quarter: 2014Q3

REPORT INFORMATION
  Report Type: Spontaneous
  Country: IT (occurrence: IT)
  Receive Date: 20140811
  Receipt Date: 20140811
  Transmission Date: 20150326
  Serious: Yes (Hospitalization)
  Sender: FDA-Public Use
  Company Number: IT-JNJFOC-20140804675

PATIENT
  Age: 63 Year
  Sex: Male

DRUGS (7)
  1. PANTOPRAZOLE SODIUM [Concomitant]
     Active Substance: PANTOPRAZOLE SODIUM
     Dosage: DAILY DOSE 20 MG
     Route: 048
  2. XARELTO [Suspect]
     Active Substance: RIVAROXABAN
     Indication: PULMONARY EMBOLISM
     Route: 048
  3. CIPRALEX [Concomitant]
     Active Substance: ESCITALOPRAM OXALATE
     Dosage: DAILY DOSE 20 MG
     Route: 048
  4. XARELTO [Suspect]
     Active Substance: RIVAROXABAN
     Indication: PULMONARY EMBOLISM
     Dosage: 30 MG DAILY DOSE
     Route: 048
     Dates: start: 20140619, end: 20140629
  5. LOSARTAN POTASSIUM. [Concomitant]
     Active Substance: LOSARTAN POTASSIUM
     Dosage: DAILY DOSE 25 MG
     Route: 048
  6. XARELTO [Suspect]
     Active Substance: RIVAROXABAN
     Indication: EMBOLISM VENOUS
     Route: 048
  7. XARELTO [Suspect]
     Active Substance: RIVAROXABAN
     Indication: EMBOLISM VENOUS
     Dosage: 30 MG DAILY DOSE
     Route: 048
     Dates: start: 20140619, end: 20140629

REACTIONS (2)
  - Renal pain [Recovering/Resolving]
  - Haematuria [Recovering/Resolving]

NARRATIVE: CASE EVENT DATE: 20140629
